FAERS Safety Report 10277267 (Version 2)
Quarter: 2014Q3

REPORT INFORMATION
  Report Type: Spontaneous
  Country: FR (occurrence: FR)
  Receive Date: 20140703
  Receipt Date: 20140703
  Transmission Date: 20150326
  Serious: Yes (Other)
  Sender: FDA-Public Use
  Company Number: FR-SA-200911376FR

PATIENT
  Age: 51 Year
  Sex: Female

DRUGS (9)
  1. APIDRA [Suspect]
     Active Substance: INSULIN GLULISINE
     Indication: TYPE 1 DIABETES MELLITUS
     Dosage: DOSE UNIT: 100 IU/ML
     Route: 058
     Dates: start: 20090323
  2. SKENAN [Concomitant]
     Active Substance: MORPHINE SULFATE
     Indication: PAIN
     Dosage: PROLONGED RELEASE MICROGRANULES CAPSULE
     Route: 048
     Dates: start: 2008
  3. ISOPHANE INSULIN [Concomitant]
     Active Substance: INSULIN NOS
  4. LEVEMIR [Concomitant]
     Active Substance: INSULIN DETEMIR
  5. NOVORAPID [Concomitant]
     Active Substance: INSULIN ASPART
  6. HUMALOG [Concomitant]
     Active Substance: INSULIN LISPRO
  7. ACTISKENAN [Concomitant]
     Active Substance: MORPHINE SULFATE
     Indication: PAIN
     Dosage: 6 IN 1 UPON THE REQUEST
     Route: 048
     Dates: start: 2008
  8. GLIMEPIRIDE. [Concomitant]
     Active Substance: GLIMEPIRIDE
     Dates: start: 2008
  9. LANTUS [Concomitant]
     Active Substance: INSULIN GLARGINE

REACTIONS (1)
  - Abdominal distension [Recovered/Resolved with Sequelae]

NARRATIVE: CASE EVENT DATE: 20090323
